FAERS Safety Report 8308713-6 (Version None)
Quarter: 2012Q2

REPORT INFORMATION
  Report Type: 
  Country: None (occurrence: None)
  Receive Date: 20120420
  Receipt Date: 20120420
  Transmission Date: 20120825
  Serious: Yes (Other)
  Sender: FDA-Public Use
  Company Number: None

PATIENT
  Age: 47 Year
  Weight: 68.0396 kg

DRUGS (1)
  1. HYDROCODONE BITARTRATE AND ACETAMINOPHEN [Suspect]
     Dosage: 5/500 ONE PO Q4-6 ORAL
     Route: 048
     Dates: start: 20120101

REACTIONS (3)
  - PRODUCT SUBSTITUTION ISSUE [None]
  - SWELLING [None]
  - URTICARIA [None]
